FAERS Safety Report 5390427-6 (Version None)
Quarter: 2007Q3

REPORT INFORMATION
  Report Type: 
  Country: None (occurrence: None)
  Receive Date: 20070712
  Receipt Date: 20070410
  Transmission Date: 20080115
  Serious: Yes (Hospitalization)
  Sender: FDA-Public Use
  Company Number: 6033982

PATIENT
  Age: 72 Year
  Sex: Female

DRUGS (2)
  1. WARFARIN SODIUM [Suspect]
     Indication: ATRIAL FIBRILLATION
     Dosage: 3 MG (3 MG,1 IN 1 D), ORAL
     Route: 048
  2. MICONAZOLE [Suspect]
     Indication: ORAL PAIN
     Dosage: (2 DOSAGE  FORMS),ORAL
     Route: 048
     Dates: start: 20061201, end: 20070323

REACTIONS (2)
  - DRUG INTERACTION [None]
  - INTERNATIONAL NORMALISED RATIO INCREASED [None]
